FAERS Safety Report 7284490-5 (Version None)
Quarter: 2011Q1

REPORT INFORMATION
  Report Type: 
  Country: None (occurrence: None)
  Receive Date: 20110209
  Receipt Date: 20110203
  Transmission Date: 20110831
  Serious: Yes (Hospitalization, Other)
  Sender: FDA-Public Use
  Company Number: US-RB-018381-10

PATIENT
  Age: 44 Year
  Sex: Male

DRUGS (3)
  1. SUBOXONE [Suspect]
     Indication: DRUG DEPENDENCE
     Dosage: DOSE TAPERED FROM 8 MG DAY 1-5
     Route: 060
     Dates: start: 20101101, end: 20101101
  2. SUBOXONE [Suspect]
     Route: 060
     Dates: start: 20101101, end: 20101101
  3. SUBOXONE [Suspect]
     Dosage: DOSE TAPERED FROM 8 MG TO 2MG OVER A 3 WEEK PERIOD.
     Route: 060
     Dates: start: 20101201, end: 20101201

REACTIONS (8)
  - DRUG WITHDRAWAL SYNDROME [None]
  - DISORIENTATION [None]
  - DYSGEUSIA [None]
  - ANXIETY [None]
  - FEELING JITTERY [None]
  - MUSCLE TWITCHING [None]
  - PALPITATIONS [None]
  - HALLUCINATION [None]
